FAERS Safety Report 12478959 (Version 1)
Quarter: 2016Q2

REPORT INFORMATION
  Report Type: Spontaneous
  Country: FR (occurrence: FR)
  Receive Date: 20160620
  Receipt Date: 20160620
  Transmission Date: 20160815
  Serious: Yes (Life-Threatening, Disabling)
  Sender: FDA-Public Use
  Company Number: FR-AUROBINDO-AUR-APL-2016-07983

PATIENT
  Age: 61 Year

DRUGS (26)
  1. AMOXICILLIN. [Suspect]
     Active Substance: AMOXICILLIN
     Dosage: UNK
     Route: 048
     Dates: start: 2014
  2. METRONIDAZOLE. [Suspect]
     Active Substance: METRONIDAZOLE
     Indication: PROTEUS INFECTION
     Dosage: UNK
     Dates: start: 201411
  3. METRONIDAZOLE. [Suspect]
     Active Substance: METRONIDAZOLE
     Dosage: UNK
     Route: 048
     Dates: start: 2014
  4. ABACIN [Suspect]
     Active Substance: SULFAMETHOXAZOLE\TRIMETHOPRIM
     Dosage: UNK
     Route: 048
     Dates: start: 2014
  5. METRONIDAZOLE. [Suspect]
     Active Substance: METRONIDAZOLE
     Dosage: UNK
     Route: 048
     Dates: start: 2014
  6. AMOXICILLIN. [Suspect]
     Active Substance: AMOXICILLIN
     Indication: ENTEROCOCCAL INFECTION
     Dosage: UNK
     Route: 042
     Dates: start: 201411
  7. ABACIN [Suspect]
     Active Substance: SULFAMETHOXAZOLE\TRIMETHOPRIM
     Indication: ESCHERICHIA INFECTION
     Dosage: UNK
     Dates: start: 201411
  8. ABACIN [Suspect]
     Active Substance: SULFAMETHOXAZOLE\TRIMETHOPRIM
     Dosage: UNK
     Route: 048
     Dates: start: 2014
  9. METRONIDAZOLE. [Suspect]
     Active Substance: METRONIDAZOLE
     Indication: BACTEROIDES INFECTION
     Dosage: UNK
     Dates: start: 201411
  10. METRONIDAZOLE. [Suspect]
     Active Substance: METRONIDAZOLE
     Dosage: UNK
     Route: 048
     Dates: start: 2014
  11. COTRIMOXAZOLE [Suspect]
     Active Substance: SULFAMETHOXAZOLE\TRIMETHOPRIM
     Indication: PRODUCT USED FOR UNKNOWN INDICATION
     Dosage: UNK
     Route: 065
  12. AMOXICILLIN. [Suspect]
     Active Substance: AMOXICILLIN
     Indication: ESCHERICHIA INFECTION
     Dosage: UNK
     Route: 042
     Dates: start: 201411
  13. ABACIN [Suspect]
     Active Substance: SULFAMETHOXAZOLE\TRIMETHOPRIM
     Indication: ENTEROCOCCAL INFECTION
     Dosage: UNK
     Dates: start: 201411
  14. ABACIN [Suspect]
     Active Substance: SULFAMETHOXAZOLE\TRIMETHOPRIM
     Dosage: UNK
     Route: 048
     Dates: start: 2014
  15. AMOXICILLIN. [Suspect]
     Active Substance: AMOXICILLIN
     Indication: PROTEUS INFECTION
     Dosage: UNK
     Route: 042
     Dates: start: 201411
  16. AMOXICILLIN. [Suspect]
     Active Substance: AMOXICILLIN
     Dosage: UNK
     Route: 048
     Dates: start: 2014
  17. AMOXICILLIN. [Suspect]
     Active Substance: AMOXICILLIN
     Dosage: UNK
     Route: 048
     Dates: start: 2014
  18. METRONIDAZOLE. [Suspect]
     Active Substance: METRONIDAZOLE
     Dosage: UNK
     Route: 048
     Dates: start: 2014
  19. AMOXICILLIN. [Suspect]
     Active Substance: AMOXICILLIN
     Indication: BACTEROIDES INFECTION
     Dosage: UNK
     Route: 042
     Dates: start: 201411
  20. AMOXICILLIN. [Suspect]
     Active Substance: AMOXICILLIN
     Dosage: UNK
     Route: 048
     Dates: start: 2014
  21. ABACIN [Suspect]
     Active Substance: SULFAMETHOXAZOLE\TRIMETHOPRIM
     Indication: PROTEUS INFECTION
     Dosage: UNK
     Dates: start: 201411
  22. METRONIDAZOLE. [Suspect]
     Active Substance: METRONIDAZOLE
     Indication: ENTEROCOCCAL INFECTION
     Dosage: UNK
     Dates: start: 201411
  23. METRONIDAZOLE. [Suspect]
     Active Substance: METRONIDAZOLE
     Indication: ESCHERICHIA INFECTION
     Dosage: UNK
     Dates: start: 201411
  24. ABACIN [Suspect]
     Active Substance: SULFAMETHOXAZOLE\TRIMETHOPRIM
     Indication: BACTEROIDES INFECTION
     Dosage: UNK
     Dates: start: 201411
  25. ABACIN [Suspect]
     Active Substance: SULFAMETHOXAZOLE\TRIMETHOPRIM
     Dosage: UNK
     Route: 048
     Dates: start: 2014
  26. VANCOMYCIN [Suspect]
     Active Substance: VANCOMYCIN
     Indication: ANTIBIOTIC THERAPY
     Dosage: UNK
     Route: 065
     Dates: start: 201411

REACTIONS (2)
  - Drug ineffective [Unknown]
  - Treatment failure [Unknown]
